FAERS Safety Report 17332245 (Version 3)
Quarter: 2020Q3

REPORT INFORMATION
  Report Type: Report from Study
  Country: GB (occurrence: GB)
  Receive Date: 20200128
  Receipt Date: 20200916
  Transmission Date: 20201102
  Serious: Yes (Hospitalization)
  Sender: FDA-Public Use
  Company Number: GB-MYLANLABS-2020M1009979

PATIENT
  Age: 63 Year
  Sex: Female

DRUGS (67)
  1. PACLITAXEL. [Suspect]
     Active Substance: PACLITAXEL
     Indication: BREAST CANCER
     Dosage: UNK
     Route: 065
  2. PENTASA [Concomitant]
     Active Substance: MESALAMINE
     Dosage: 1 GRAM, QD
     Route: 065
     Dates: start: 20131217, end: 20180730
  3. HYDROXOCOBALAMIN [Concomitant]
     Active Substance: HYDROXOCOBALAMIN
     Dosage: HYDROXOCOBALAMIN 1MG/1ML
     Route: 042
     Dates: start: 20020115
  4. FEXOFENADINE [Concomitant]
     Active Substance: FEXOFENADINE HYDROCHLORIDE
     Dosage: UNK
  5. GENTAMYCIN                         /00047101/ [Concomitant]
     Active Substance: GENTAMICIN
     Dosage: UNK
  6. EUMOVATE [Concomitant]
     Active Substance: CLOBETASONE BUTYRATE
     Dosage: UNK
  7. LETROZOLE. [Suspect]
     Active Substance: LETROZOLE
     Dosage: 2.5 MILLIGRAM, QD
     Route: 048
     Dates: start: 20180525, end: 20181011
  8. EXEMESTANE. [Suspect]
     Active Substance: EXEMESTANE
     Indication: BREAST CANCER METASTATIC
     Dosage: 25 MILLIGRAM, QD
     Route: 048
     Dates: start: 20200228
  9. FLUCONAZOLE. [Concomitant]
     Active Substance: FLUCONAZOLE
     Dosage: 100 MILLIGRAM, QD
     Route: 048
     Dates: start: 20180125, end: 20180128
  10. OMEPRAZOLE. [Concomitant]
     Active Substance: OMEPRAZOLE
     Dosage: 20 MILLIGRAM, QD
     Route: 065
     Dates: start: 20091014
  11. ADCAL D3 [Concomitant]
     Active Substance: CALCIUM CARBONATE\CHOLECALCIFEROL
     Dosage: 2 DOSAGE FORM, QD
     Route: 048
     Dates: start: 20140127
  12. ZEROBASE                           /01007601/ [Concomitant]
     Indication: DRY SKIN
     Dosage: PRN (AS NEEDED)
     Route: 065
  13. CHIROCAINE [Concomitant]
     Active Substance: LEVOBUPIVACAINE HYDROCHLORIDE
     Dosage: UNK
  14. TRANEXAMIC ACID. [Concomitant]
     Active Substance: TRANEXAMIC ACID
     Dosage: UNK
  15. CLEXANE [Concomitant]
     Active Substance: ENOXAPARIN SODIUM
     Dosage: UNK
  16. HEPARIN SODIUM. [Concomitant]
     Active Substance: HEPARIN SODIUM
     Dosage: UNK
  17. DERMOL                             /01330701/ [Concomitant]
     Dosage: UNK
  18. ENOXAPARIN [Concomitant]
     Active Substance: ENOXAPARIN
     Dosage: UNK
  19. PARACETAMOL [Concomitant]
     Active Substance: ACETAMINOPHEN
     Dosage: UNK
  20. LETROZOLE. [Suspect]
     Active Substance: LETROZOLE
     Indication: BREAST CANCER METASTATIC
     Dosage: 2.5 MILLIGRAM, QD
     Route: 048
     Dates: start: 20180119, end: 20180126
  21. LETROZOLE. [Suspect]
     Active Substance: LETROZOLE
     Indication: BREAST CANCER
     Dosage: 1 DOSAGE FORM, QD
     Route: 048
     Dates: start: 20180525, end: 20181011
  22. FOLIC ACID. [Concomitant]
     Active Substance: FOLIC ACID
     Dosage: 5 MILLIGRAM, QD
     Route: 065
     Dates: start: 20030207
  23. GLUCOSE [Concomitant]
     Active Substance: DEXTROSE
     Dosage: UNK
  24. SUGAMMADEX [Concomitant]
     Active Substance: SUGAMMADEX
     Dosage: UNK
  25. AQUACEL [Concomitant]
     Active Substance: CARBOXYMETHYLCELLULOSE SODIUM
     Dosage: UNK
  26. MAGNESIUM ASPARTATE [Concomitant]
     Active Substance: MAGNESIUM ASPARTATE
     Dosage: UNK
  27. NACL [Concomitant]
     Active Substance: SODIUM CHLORIDE
     Dosage: UNK
  28. TRASTUZUMAB. [Suspect]
     Active Substance: TRASTUZUMAB
     Indication: BREAST CANCER METASTATIC
     Dosage: 420 MILLIGRAM, Q3W
     Route: 042
     Dates: start: 20191019
  29. OXYCODONE [Concomitant]
     Active Substance: OXYCODONE
     Dosage: UNK
     Dates: start: 20180916, end: 20181002
  30. BENDROFLUMETHIAZIDE [Concomitant]
     Active Substance: BENDROFLUMETHIAZIDE
     Dosage: 2.5 MILLIGRAM, QD
     Route: 048
     Dates: start: 20030114
  31. RANITIDINE. [Concomitant]
     Active Substance: RANITIDINE
     Dosage: 50 MILLIGRAM
     Route: 042
     Dates: start: 20180202, end: 20180518
  32. CLARITHROMYCIN. [Concomitant]
     Active Substance: CLARITHROMYCIN
     Dosage: UNK
  33. METRONIDAZOLE. [Concomitant]
     Active Substance: METRONIDAZOLE
     Dosage: UNK
  34. FERROUS FUMARATE [Concomitant]
     Active Substance: FERROUS FUMARATE
     Dosage: UNK
  35. CYCLIZINE [Concomitant]
     Active Substance: CYCLIZINE
     Dosage: UNK
  36. COLECALCIFEROL [Concomitant]
     Active Substance: CHOLECALCIFEROL
     Dosage: UNK
     Dates: start: 20180926
  37. OXYCODONE [Concomitant]
     Active Substance: OXYCODONE
     Dosage: UNK
  38. PROPOFOL. [Concomitant]
     Active Substance: PROPOFOL
     Dosage: UNK
  39. TRIMETHOPRIM. [Concomitant]
     Active Substance: TRIMETHOPRIM
     Dosage: UNK
  40. ONDANSETRON [Concomitant]
     Active Substance: ONDANSETRON
     Indication: BONE PAIN
     Dosage: UNK
  41. QUININE SULPHATE [Concomitant]
     Active Substance: QUININE SULFATE
     Dosage: 200 MILLIGRAM, QD
     Route: 048
     Dates: start: 20040219, end: 20180225
  42. COCODAMOL [Concomitant]
     Active Substance: ACETAMINOPHEN\CODEINE PHOSPHATE
     Dosage: PRN (AS NEEDED)
     Route: 048
     Dates: start: 20180302
  43. BENZYDAMINE [Concomitant]
     Active Substance: BENZYDAMINE
     Dosage: 5 MILLILITER
     Route: 065
     Dates: start: 20180414
  44. METOCLOPRAMIDE. [Concomitant]
     Active Substance: METOCLOPRAMIDE
     Dosage: PRN (AS NEEDED)
     Route: 048
     Dates: start: 20180202, end: 20180518
  45. DOXAZOSIN [Concomitant]
     Active Substance: DOXAZOSIN MESYLATE
     Dosage: 2 MILLIGRAM, QD
     Route: 048
     Dates: start: 20040816
  46. DOUBLEBASE [Concomitant]
     Active Substance: ISOPROPYL MYRISTATE\PARAFFIN
     Dosage: UNK
     Route: 065
  47. PLASMA?LYTE 148 [Concomitant]
     Active Substance: MAGNESIUM CHLORIDE\POTASSIUM CHLORIDE\SODIUM ACETATE\SODIUM CHLORIDE\SODIUM GLUCONATE
     Dosage: UNK
  48. ONDANSETRON [Concomitant]
     Active Substance: ONDANSETRON
     Dosage: UNK
     Dates: start: 20181216
  49. PACLITAXEL. [Suspect]
     Active Substance: PACLITAXEL
     Indication: BREAST CANCER METASTATIC
     Dosage: 156 MILLIGRAM, QW
     Route: 042
     Dates: start: 20180202, end: 20180518
  50. TRASTUZUMAB. [Suspect]
     Active Substance: TRASTUZUMAB
     Dosage: 600 MILLIGRAM
     Route: 058
     Dates: start: 20180202, end: 20180827
  51. PIRITON [Concomitant]
     Active Substance: CHLORPHENIRAMINE MALEATE
     Dosage: PRN (AS NEEDED)
     Route: 048
     Dates: start: 20180125
  52. TERBUTALINE [Concomitant]
     Active Substance: TERBUTALINE
     Dosage: 2000 MICROGRAM, QD
     Route: 065
     Dates: start: 20030108
  53. AMLODIPINE [Concomitant]
     Active Substance: AMLODIPINE BESYLATE
     Dosage: 10 MILLIGRAM, QD
     Route: 048
     Dates: end: 20180301
  54. DEXAMETHASONE. [Concomitant]
     Active Substance: DEXAMETHASONE
     Dosage: 8 MILLIGRAM
     Route: 042
     Dates: start: 20180202, end: 20180518
  55. SANDO K                            /00209301/ [Concomitant]
     Active Substance: POTASSIUM BICARBONATE\POTASSIUM CHLORIDE
     Dosage: UNK
  56. VANCOMYCIN [Concomitant]
     Active Substance: VANCOMYCIN
     Dosage: UNK
  57. ZOLEDRONIC ACID [Concomitant]
     Active Substance: ZOLEDRONIC ACID
     Dosage: 4 MILLIGRAM
     Dates: start: 20181019
  58. MORPHINE                           /00036302/ [Concomitant]
     Active Substance: MORPHINE
     Dosage: UNK
  59. DOXYCYCLINE. [Concomitant]
     Active Substance: DOXYCYCLINE
     Dosage: UNK
  60. TRASTUZUMAB. [Suspect]
     Active Substance: TRASTUZUMAB
     Indication: BREAST CANCER
     Dosage: UNK
     Route: 065
  61. TERBUTALINE [Concomitant]
     Active Substance: TERBUTALINE
     Dosage: 500 MICROGRAM(0.25 DAY)
     Dates: start: 20030108
  62. CHLORPHENAMINE [Concomitant]
     Active Substance: CHLORPHENIRAMINE MALEATE
     Dosage: 10 MILLIGRAM
     Route: 042
     Dates: start: 20180202, end: 20180518
  63. ADCAL D3 [Concomitant]
     Active Substance: CALCIUM CARBONATE\CHOLECALCIFEROL
     Dosage: UNK UNK, BID
     Route: 048
     Dates: start: 20140127
  64. CLOTRIMAZOLE. [Concomitant]
     Active Substance: CLOTRIMAZOLE
     Dosage: UNK
     Route: 061
  65. SILVER NITRATE. [Concomitant]
     Active Substance: SILVER NITRATE
     Dosage: UNK
  66. TEICOPLANIN [Concomitant]
     Active Substance: TEICOPLANIN
     Dosage: UNK
  67. OXYGEN. [Concomitant]
     Active Substance: OXYGEN
     Dosage: UNK

REACTIONS (6)
  - Pruritus [Not Recovered/Not Resolved]
  - Infection [Not Recovered/Not Resolved]
  - Stoma site haemorrhage [Recovered/Resolved]
  - Skin abrasion [Not Recovered/Not Resolved]
  - Gastrointestinal haemorrhage [Recovered/Resolved]
  - Stoma site hypergranulation [Recovered/Resolved]

NARRATIVE: CASE EVENT DATE: 20180323
